FAERS Safety Report 8588516-8 (Version None)
Quarter: 2012Q3

REPORT INFORMATION
  Report Type: 
  Country: None (occurrence: None)
  Receive Date: 20120813
  Receipt Date: 20120801
  Transmission Date: 20120928
  Serious: Yes (Hospitalization)
  Sender: FDA-Public Use
  Company Number: FR-GENZYME-CLOF-1002244

PATIENT
  Sex: Male

DRUGS (5)
  1. ZOFRAN [Concomitant]
     Indication: NAUSEA
     Dosage: UNK
     Route: 065
  2. HYDROCORTISONE [Concomitant]
     Indication: PRODUCT USED FOR UNKNOWN INDICATION
     Dosage: UNK
     Route: 065
  3. CLOFARABINE [Suspect]
     Indication: MYELODYSPLASTIC SYNDROME
     Dosage: 21 MG, UNK
     Route: 042
     Dates: start: 20120723
  4. ZOFRAN [Concomitant]
     Indication: VOMITING
  5. VOGALENE [Concomitant]
     Indication: NAUSEA
     Dosage: UNK
     Route: 065

REACTIONS (1)
  - FEBRILE BONE MARROW APLASIA [None]
